FAERS Safety Report 8547659-5 (Version None)
Quarter: 2012Q3

REPORT INFORMATION
  Report Type: 
  Country: None (occurrence: None)
  Receive Date: 20120727
  Receipt Date: 20111102
  Transmission Date: 20120928
  Serious: Yes (Hospitalization)
  Sender: FDA-Public Use
  Company Number: US-ASTRAZENECA-2011SE66477

PATIENT
  Sex: Female

DRUGS (3)
  1. SEROQUEL [Suspect]
     Route: 048
  2. SEROQUEL [Suspect]
     Dosage: AS REQUIRED
     Route: 048
  3. SEROQUEL [Suspect]
     Indication: SLEEP DISORDER
     Route: 048
     Dates: start: 20080101

REACTIONS (6)
  - MALAISE [None]
  - INSOMNIA [None]
  - ASTHMA [None]
  - OFF LABEL USE [None]
  - PYREXIA [None]
  - DRUG PRESCRIBING ERROR [None]
